FAERS Safety Report 8177213-9 (Version None)
Quarter: 2012Q1

REPORT INFORMATION
  Report Type: 
  Country: None (occurrence: None)
  Receive Date: 20120301
  Receipt Date: 20120223
  Transmission Date: 20120608
  Serious: Yes (Hospitalization)
  Sender: FDA-Public Use
  Company Number: US-JNJFOC-20120204170

PATIENT
  Sex: Male
  Weight: 62.14 kg

DRUGS (26)
  1. NEXIUM [Concomitant]
  2. GABAPENTIN [Concomitant]
  3. CODEINE SULFATE [Concomitant]
  4. MULTIPLE VITAMIN [Concomitant]
  5. AMIKACIN SULFATE [Concomitant]
  6. RIBOFLAVIN [Concomitant]
  7. IMMUNE GLOBULIN INTRAVENOUS (HUMAN) [Concomitant]
     Dates: start: 20080808
  8. E VITAMIN [Concomitant]
  9. CALCIUM CARBONATE [Concomitant]
  10. XOPENEX [Concomitant]
  11. GLYCOLAX [Concomitant]
  12. FOLIC ACID [Concomitant]
  13. ASCORBIC ACID [Concomitant]
  14. ACETAMINOPHEN [Concomitant]
  15. BENADRYL [Concomitant]
  16. ATENOLOL [Concomitant]
  17. NALTREXONE HYDROCHLORIDE [Concomitant]
  18. PROVIGIL [Concomitant]
  19. MESALAMINE [Concomitant]
     Route: 048
  20. SELENIUM [Concomitant]
  21. COENZYME 10 [Concomitant]
  22. REMICADE [Suspect]
     Indication: INFLAMMATORY BOWEL DISEASE
     Route: 042
     Dates: start: 20050807, end: 20100507
  23. PULMICORT [Concomitant]
  24. ZOFRAN [Concomitant]
  25. DULCOLAX [Concomitant]
  26. LIPOIC ACID [Concomitant]

REACTIONS (1)
  - DEHYDRATION [None]
